FAERS Safety Report 4614049-7 (Version None)
Quarter: 2005Q1

REPORT INFORMATION
  Report Type: 
  Country: None (occurrence: None)
  Receive Date: 20050316
  Receipt Date: 20050225
  Transmission Date: 20050727
  Serious: Yes (Hospitalization)
  Sender: FDA-Public Use
  Company Number: AU_050208402

PATIENT
  Age: 36 Year
  Sex: Female

DRUGS (2)
  1. OLANZAPINE [Suspect]
     Indication: SCHIZOAFFECTIVE DISORDER
     Dosage: 20 MG/ONCE AT BEDTIME
     Dates: start: 20020101
  2. LITHIUM [Concomitant]

REACTIONS (10)
  - AFFECTIVE DISORDER [None]
  - CHEST PAIN [None]
  - DYSPNOEA [None]
  - FLUID RETENTION [None]
  - HEART RATE INCREASED [None]
  - HYPERVENTILATION [None]
  - HYPOVENTILATION [None]
  - JOINT SWELLING [None]
  - PALPITATIONS [None]
  - PSYCHOTIC DISORDER [None]
